FAERS Safety Report 14211765 (Version 3)
Quarter: 2017Q4

REPORT INFORMATION
  Report Type: Spontaneous
  Country: US (occurrence: US)
  Receive Date: 20171122
  Receipt Date: 20171221
  Transmission Date: 20180321
  Serious: Yes (Other)
  Sender: FDA-Public Use
  Company Number: US-HORIZON-DUE-0211-2017

PATIENT
  Sex: Female

DRUGS (4)
  1. GABAPENTIN. [Concomitant]
     Active Substance: GABAPENTIN
     Indication: PAIN
  2. DUEXIS [Suspect]
     Active Substance: FAMOTIDINE\IBUPROFEN
     Indication: PAIN
     Dosage: HALF TABLET AS NEEDED
  3. TRAMADOL. [Concomitant]
     Active Substance: TRAMADOL
     Indication: PAIN
  4. LIDODERM [Concomitant]
     Active Substance: LIDOCAINE
     Indication: PAIN

REACTIONS (5)
  - Intentional product use issue [Unknown]
  - Off label use [Unknown]
  - Proctitis [Unknown]
  - Polyp [Unknown]
  - Gastric ulcer [Unknown]
